FAERS Safety Report 4492287-4 (Version None)
Quarter: 2004Q4

REPORT INFORMATION
  Report Type: 
  Country: None (occurrence: None)
  Receive Date: 20041103
  Receipt Date: 20041026
  Transmission Date: 20050328
  Serious: Yes (Hospitalization)
  Sender: FDA-Public Use
  Company Number: US-MERCK-0410USA03931

PATIENT
  Age: 50 Year
  Sex: Female

DRUGS (8)
  1. VIOXX [Suspect]
     Indication: ARTHRITIS
     Route: 048
  2. SEROQUEL [Concomitant]
     Route: 065
  3. CARDIS [Concomitant]
     Route: 065
  4. LIPITOR [Concomitant]
     Route: 065
  5. LEVOXYL [Concomitant]
     Route: 065
  6. MECLIZINE [Concomitant]
     Route: 065
  7. PROTONIX [Concomitant]
     Route: 065
  8. WELLBUTRIN [Concomitant]
     Route: 065

REACTIONS (2)
  - ANGINA PECTORIS [None]
  - CHEST PAIN [None]
